FAERS Safety Report 12297647 (Version 3)
Quarter: 2019Q1

REPORT INFORMATION
  Report Type: Spontaneous
  Country: US (occurrence: US)
  Receive Date: 20160422
  Receipt Date: 20190329
  Transmission Date: 20190417
  Serious: Yes (Other)
  Sender: FDA-Public Use
  Company Number: US-ASTRAZENECA-2016SE41627

PATIENT
  Sex: Male
  Weight: 155.1 kg

DRUGS (6)
  1. ONGLYZA [Suspect]
     Active Substance: SAXAGLIPTIN HYDROCHLORIDE
     Indication: TYPE 2 DIABETES MELLITUS
     Route: 048
     Dates: start: 20120220, end: 20140716
  2. LEVOTHYROXINE. [Concomitant]
     Active Substance: LEVOTHYROXINE
  3. WARFARIN [Concomitant]
     Active Substance: WARFARIN
  4. PRANDIN [Concomitant]
     Active Substance: REPAGLINIDE
  5. KOMBIGLYZE XR [Suspect]
     Active Substance: METFORMIN HYDROCHLORIDE\SAXAGLIPTIN HYDROCHLORIDE
     Indication: TYPE 2 DIABETES MELLITUS
     Route: 048
     Dates: start: 201202, end: 201407
  6. ONGLYZA [Suspect]
     Active Substance: SAXAGLIPTIN HYDROCHLORIDE
     Indication: TYPE 2 DIABETES MELLITUS
     Route: 048
     Dates: start: 201202, end: 201407

REACTIONS (5)
  - Left ventricular failure [Unknown]
  - Cardiac failure congestive [Unknown]
  - Cardiomyopathy [Unknown]
  - Hypertensive heart disease [Unknown]
  - Cardiac failure [Unknown]

NARRATIVE: CASE EVENT DATE: 201405
